FAERS Safety Report 10442714 (Version 1)
Quarter: 2014Q3

REPORT INFORMATION
  Report Type: Spontaneous
  Country: DE (occurrence: DE)
  Receive Date: 20140909
  Receipt Date: 20140909
  Transmission Date: 20150326
  Serious: Yes (Other)
  Sender: FDA-Public Use
  Company Number: PHHY2014DE109068

PATIENT
  Age: 40 Year
  Sex: Male

DRUGS (6)
  1. LEPONEX [Suspect]
     Active Substance: CLOZAPINE
     Dosage: 100 MG
  2. ROSEL [Concomitant]
     Dosage: UKN
  3. ZYPREXA [Concomitant]
     Active Substance: OLANZAPINE
     Dosage: 10 TO 15 MG
  4. LEPONEX [Suspect]
     Active Substance: CLOZAPINE
     Dosage: 200 MG
     Dates: start: 2000
  5. LEPONEX [Suspect]
     Active Substance: CLOZAPINE
     Dosage: 200 MG
  6. MARCUMAR [Concomitant]
     Active Substance: PHENPROCOUMON
     Dosage: UKN

REACTIONS (4)
  - Infection [Unknown]
  - Somnolence [Unknown]
  - Fatigue [Unknown]
  - Cardiac valve disease [Unknown]
